FAERS Safety Report 23032341 (Version 3)
Quarter: 2023Q4

REPORT INFORMATION
  Report Type: Spontaneous
  Country: US (occurrence: US)
  Receive Date: 20231005
  Receipt Date: 20231219
  Transmission Date: 20240109
  Serious: Yes (Hospitalization, Other)
  Sender: FDA-Public Use
  Company Number: US-BRISTOL-MYERS SQUIBB COMPANY-2023-140699

PATIENT
  Age: 91 Year
  Sex: Female

DRUGS (1)
  1. POMALYST [Suspect]
     Active Substance: POMALIDOMIDE
     Indication: Plasma cell myeloma
     Dosage: TAKE 1 CAPSULE (2MG) BY MOUTH EVERY DAY WITH BREAKFAST ON DAYS 1-21, THEN 7 DAYS OFF
     Route: 048
     Dates: start: 20231002

REACTIONS (7)
  - Pneumonia [Recovered/Resolved]
  - Influenza [Recovered/Resolved]
  - Tooth infection [Not Recovered/Not Resolved]
  - Oral infection [Not Recovered/Not Resolved]
  - Arthralgia [Not Recovered/Not Resolved]
  - Back pain [Not Recovered/Not Resolved]
  - Infection [Not Recovered/Not Resolved]
